FAERS Safety Report 20603769 (Version 1)
Quarter: 2022Q1

REPORT INFORMATION
  Report Type: Spontaneous
  Country: US (occurrence: None)
  Receive Date: 20220316
  Receipt Date: 20220316
  Transmission Date: 20220423
  Serious: No
  Sender: FDA-Public Use
  Company Number: None

PATIENT
  Age: 72 Year
  Sex: Female
  Weight: 93 kg

DRUGS (1)
  1. CASIRIVIMAB\IMDEVIMAB [Suspect]
     Active Substance: CASIRIVIMAB\IMDEVIMAB
     Indication: COVID-19
     Dosage: 600 MG ONCE IV?
     Route: 042
     Dates: start: 20211229, end: 20211229

REACTIONS (4)
  - Cough [None]
  - Pyrexia [None]
  - Wheezing [None]
  - Infusion related reaction [None]

NARRATIVE: CASE EVENT DATE: 20211229
